FAERS Safety Report 9152899 (Version 3)
Quarter: 2013Q1

REPORT INFORMATION
  Report Type: Report from Study
  Country: GB (occurrence: GB)
  Receive Date: 20130309
  Receipt Date: 20130325
  Transmission Date: 20140127
  Serious: Yes (Congenital Anomaly)
  Sender: FDA-Public Use
  Company Number: GB-B.I. PHARMACEUTICALS,INC./RIDGEFIELD-2013-BI-05878BP

PATIENT
  Sex: 0

DRUGS (2)
  1. VIRAMUNE [Suspect]
     Indication: MATERNAL EXPOSURE DURING PREGNANCY
     Dosage: 400 MG
     Route: 064
     Dates: start: 20060302
  2. TRUVADA [Concomitant]
     Indication: MATERNAL EXPOSURE DURING PREGNANCY
     Route: 064
     Dates: start: 20090901

REACTIONS (1)
  - Spina bifida [Unknown]
